FAERS Safety Report 5786388-8 (Version None)
Quarter: 2008Q2

REPORT INFORMATION
  Report Type: 
  Country: None (occurrence: None)
  Receive Date: 20080624
  Receipt Date: 20080616
  Transmission Date: 20081010
  Serious: Yes (Hospitalization)
  Sender: FDA-Public Use
  Company Number: US-ELI_LILLY_AND_COMPANY-US200805004955

PATIENT
  Sex: Female

DRUGS (6)
  1. HUMALOG MIX 75/25 [Suspect]
     Dosage: 50 U, EACH MORNING
  2. HUMALOG MIX 75/25 [Suspect]
     Dosage: 60 U, EACH EVENING
  3. HUMALOG MIX 75/25 [Suspect]
     Dosage: 50 U, EACH MORNING
  4. HUMALOG MIX 75/25 [Suspect]
     Dosage: 60 U, EACH EVENING
  5. HUMALOG MIX 75/25 [Suspect]
     Dosage: 50 U, EACH MORNING
  6. HUMALOG MIX 75/25 [Suspect]
     Dosage: 60 U, EACH EVENING

REACTIONS (3)
  - CARDIAC FLUTTER [None]
  - FATIGUE [None]
  - PYREXIA [None]
